FAERS Safety Report 18579258 (Version 1)
Quarter: 2020Q4

REPORT INFORMATION
  Report Type: Spontaneous
  Country: US (occurrence: US)
  Receive Date: 20201202
  Receipt Date: 20201202
  Transmission Date: 20210114
  Serious: No
  Sender: FDA-Public Use
  Company Number: None

PATIENT
  Age: 53 Year
  Sex: Male
  Weight: 80 kg

DRUGS (2)
  1. LIFITEGRAST (LIFITEGRAST 5% SOLN, OPH, 0.2ML) [Suspect]
     Active Substance: LIFITEGRAST
     Indication: DRY EYE
     Route: 047
     Dates: start: 20180425, end: 20180806
  2. LIFITEGRAST (LIFITEGRAST 5% SOLN, OPH, 0.2ML) [Suspect]
     Active Substance: LIFITEGRAST
     Indication: INTRAOCULAR PRESSURE TEST
     Route: 047
     Dates: start: 20180425, end: 20180806

REACTIONS (2)
  - Instillation site discolouration [None]
  - Corneal disorder [None]

NARRATIVE: CASE EVENT DATE: 20181127
